FAERS Safety Report 8465850-3 (Version None)
Quarter: 2012Q2

REPORT INFORMATION
  Report Type: 
  Country: None (occurrence: None)
  Receive Date: 20120626
  Receipt Date: 20120619
  Transmission Date: 20120825
  Serious: Yes (Hospitalization, Other)
  Sender: FDA-Public Use
  Company Number: US-AMGEN-QUU364389

PATIENT
  Age: 70 Year
  Sex: Female

DRUGS (2)
  1. METHOTREXATE [Concomitant]
     Dosage: UNK UNK, UNK
  2. ENBREL [Suspect]
     Indication: RHEUMATOID ARTHRITIS
     Dosage: 50 MG, QWK
     Route: 058
     Dates: start: 20081121

REACTIONS (6)
  - RHEUMATOID ARTHRITIS [None]
  - ABDOMINAL ABSCESS [None]
  - ABSCESS RUPTURE [None]
  - FEMALE GENITAL TRACT FISTULA [None]
  - INJECTION SITE PAIN [None]
  - DIVERTICULITIS [None]
